FAERS Safety Report 9710256 (Version 2)
Quarter: 2013Q4

REPORT INFORMATION
  Report Type: Spontaneous
  Country: US (occurrence: US)
  Receive Date: 20131126
  Receipt Date: 20131126
  Transmission Date: 20140711
  Serious: No
  Sender: FDA-Public Use
  Company Number: US-BRISTOL-MYERS SQUIBB COMPANY-18736678

PATIENT
  Age: 62 Year
  Sex: Female
  Weight: 108.84 kg

DRUGS (4)
  1. BYETTA [Suspect]
     Indication: TYPE 2 DIABETES MELLITUS
     Dosage: INITIALLY GIVEN DOSE 5MCG; C046769A-SEP14
     Route: 058
  2. METFORMIN [Concomitant]
  3. GLIMEPIRIDE [Concomitant]
  4. ASPIRIN [Concomitant]

REACTIONS (4)
  - Nervousness [Recovered/Resolved]
  - Product quality issue [Unknown]
  - Injection site haemorrhage [Unknown]
  - Injection site bruising [Unknown]
